FAERS Safety Report 13563673 (Version 1)
Quarter: 2017Q2

REPORT INFORMATION
  Report Type: Spontaneous
  Country: FR (occurrence: FR)
  Receive Date: 20170519
  Receipt Date: 20170519
  Transmission Date: 20170830
  Serious: Yes (Disabling)
  Sender: FDA-Public Use
  Company Number: FR-ASTRAZENECA-2017SE52432

PATIENT
  Sex: Male

DRUGS (2)
  1. PULMICORT TBH [Suspect]
     Active Substance: BUDESONIDE
     Dosage: 200 ???G, 1 INHALATION TWICE A DAY
     Route: 055
  2. NASACORT [Suspect]
     Active Substance: TRIAMCINOLONE ACETONIDE
     Route: 045

REACTIONS (3)
  - Visual impairment [Unknown]
  - Retinal oedema [Unknown]
  - Glaucoma [Unknown]
